FAERS Safety Report 19406959 (Version 1)
Quarter: 2021Q2

REPORT INFORMATION
  Report Type: Other
  Country: ES (occurrence: ES)
  Receive Date: 20210611
  Receipt Date: 20210611
  Transmission Date: 20210717
  Serious: Yes (Other)
  Sender: FDA-Public Use
  Company Number: ES-GE HEALTHCARE LIFE SCIENCES-2021CSU002693

PATIENT

DRUGS (4)
  1. CLARISCAN [Suspect]
     Active Substance: GADOTERATE MEGLUMINE
     Indication: SKIN TEST
     Dosage: UNK UNK, SINGLE
     Route: 023
  2. GADOBUTROL. [Suspect]
     Active Substance: GADOBUTROL
     Indication: DIAGNOSTIC PROCEDURE
     Dosage: UNK UNK, SINGLE
     Route: 065
  3. GADOBUTROL. [Suspect]
     Active Substance: GADOBUTROL
     Indication: PRODUCT USED FOR UNKNOWN INDICATION
  4. GADOBUTROL. [Suspect]
     Active Substance: GADOBUTROL
     Indication: SKIN TEST
     Dosage: UNK, SINGLE
     Route: 023

REACTIONS (2)
  - Skin test positive [Unknown]
  - Anaphylactic reaction [Unknown]
